FAERS Safety Report 13632470 (Version 4)
Quarter: 2017Q3

REPORT INFORMATION
  Report Type: Spontaneous
  Country: BR (occurrence: BR)
  Receive Date: 20170608
  Receipt Date: 20170803
  Transmission Date: 20171127
  Serious: Yes (Other)
  Sender: FDA-Public Use
  Company Number: BR-AMGEN-BRASP2017087195

PATIENT
  Age: 35 Year
  Sex: Female

DRUGS (1)
  1. ENBREL [Suspect]
     Active Substance: ETANERCEPT
     Indication: PSORIATIC ARTHROPATHY
     Dosage: 50 MG, UNK
     Route: 065
     Dates: start: 2012

REACTIONS (7)
  - Renal failure [Unknown]
  - Emotional disorder [Unknown]
  - Psoriasis [Not Recovered/Not Resolved]
  - Infection [Unknown]
  - Wound [Not Recovered/Not Resolved]
  - Anaemia [Unknown]
  - Diabetes mellitus [Unknown]
